FAERS Safety Report 19857672 (Version 4)
Quarter: 2021Q4

REPORT INFORMATION
  Report Type: Report from Study
  Country: CN (occurrence: CN)
  Receive Date: 20210920
  Receipt Date: 20211108
  Transmission Date: 20220303
  Serious: Yes (Hospitalization)
  Sender: FDA-Public Use
  Company Number: CN-KARYOPHARM-2021KPT001209

PATIENT
  Age: 58 Year
  Sex: Male

DRUGS (8)
  1. SELINEXOR [Suspect]
     Active Substance: SELINEXOR
     Indication: Peripheral T-cell lymphoma unspecified
     Dosage: 60 MG, QD
     Route: 048
     Dates: start: 20210617, end: 20210617
  2. SELINEXOR [Suspect]
     Active Substance: SELINEXOR
     Indication: Angiocentric lymphoma
     Dosage: 40 MG, QD
     Route: 048
     Dates: start: 20210806, end: 20210806
  3. GEMCITABINE [Suspect]
     Active Substance: GEMCITABINE
     Indication: Peripheral T-cell lymphoma unspecified
     Dosage: 1.59 G, QD
     Route: 041
     Dates: start: 20210617, end: 20210617
  4. GEMCITABINE [Suspect]
     Active Substance: GEMCITABINE
     Indication: Angiocentric lymphoma
     Dosage: 1.19 G, QD
     Route: 041
     Dates: start: 20210806, end: 20210806
  5. OXALIPLATIN [Suspect]
     Active Substance: OXALIPLATIN
     Indication: Peripheral T-cell lymphoma unspecified
     Dosage: 206.7 MG, QD
     Route: 041
     Dates: start: 20210617, end: 20210617
  6. OXALIPLATIN [Suspect]
     Active Substance: OXALIPLATIN
     Indication: Angiocentric lymphoma
     Dosage: 159 MG, QD
     Route: 041
     Dates: start: 20210806, end: 20210806
  7. BLEOMYCIN [Concomitant]
     Active Substance: BLEOMYCIN SULFATE
     Indication: Neoplasm
     Dosage: 1.5 MILLION INTERNATIONAL UNIT, QD
     Route: 041
     Dates: start: 20210825, end: 20210825
  8. BLEOMYCIN [Concomitant]
     Active Substance: BLEOMYCIN SULFATE
     Dosage: 1.5 MILLION INTERNATIONAL UNIT, QD
     Route: 041
     Dates: start: 20210827, end: 20210827

REACTIONS (2)
  - Anaemia [Not Recovered/Not Resolved]
  - Platelet count decreased [Not Recovered/Not Resolved]

NARRATIVE: CASE EVENT DATE: 20210901
